FAERS Safety Report 7391569-6 (Version None)
Quarter: 2011Q2

REPORT INFORMATION
  Report Type: 
  Country: None (occurrence: None)
  Receive Date: 20110404
  Receipt Date: 20110321
  Transmission Date: 20111010
  Serious: Yes (Other)
  Sender: FDA-Public Use
  Company Number: PHHY2011US12202

PATIENT
  Sex: Male
  Weight: 48.98 kg

DRUGS (1)
  1. GILENYA [Suspect]
     Indication: RELAPSING-REMITTING MULTIPLE SCLEROSIS
     Dosage: 0.5 MG, QD
     Route: 048
     Dates: start: 20101201

REACTIONS (6)
  - RASH [None]
  - DEHYDRATION [None]
  - RETCHING [None]
  - SKIN INFECTION [None]
  - BLISTER [None]
  - SCRATCH [None]
